FAERS Safety Report 18188031 (Version 1)
Quarter: 2020Q3

REPORT INFORMATION
  Report Type: Spontaneous
  Country: DE (occurrence: DE)
  Receive Date: 20200824
  Receipt Date: 20200824
  Transmission Date: 20201103
  Serious: Yes (Life-Threatening, Hospitalization)
  Sender: FDA-Public Use
  Company Number: DE-TEVA-2020-DE-1817124

PATIENT
  Age: 66 Year
  Sex: Female

DRUGS (10)
  1. ATORVASTATIN [Concomitant]
     Active Substance: ATORVASTATIN
     Dosage: 40 MILLIGRAM DAILY;  0?0?1?0
  2. RAMIPRIL. [Concomitant]
     Active Substance: RAMIPRIL
     Dosage: 10 MILLIGRAM DAILY; 1?0?1?0
  3. HEPARIN [Suspect]
     Active Substance: HEPARIN SODIUM
     Dosage: NK MG, ACCORDING TO THE SCHEME
     Route: 065
  4. LERCANIDIPINE [Concomitant]
     Active Substance: LERCANIDIPINE
     Dosage: 20 MILLIGRAM DAILY;  1?0?1?0
  5. TRIMIPRAMIN [Concomitant]
     Active Substance: TRIMIPRAMINE
     Dosage: 25 MILLIGRAM DAILY;  0?0?1?0
  6. ALLOPURINOL. [Concomitant]
     Active Substance: ALLOPURINOL
     Dosage: 300 MILLIGRAM DAILY; 0?1?0?0
  7. LEVOTHYROXIN?NATRIUM [Concomitant]
     Active Substance: LEVOTHYROXINE SODIUM
     Dosage: 75 MICROGRAM DAILY; 1?0?0?0
  8. DEKRISTOL 20000I.E. [Concomitant]
     Dosage: EVERY 2 WEEKS
  9. CISPLATIN. [Suspect]
     Active Substance: CISPLATIN
     Dosage: NK MG, LAST 13052020
     Route: 065
  10. TORASEMID [Concomitant]
     Active Substance: TORSEMIDE
     Dosage: 20 MILLIGRAM DAILY; 1?1?0?0

REACTIONS (4)
  - Hyperventilation [Recovering/Resolving]
  - Abdominal pain [Recovering/Resolving]
  - Nausea [Recovering/Resolving]
  - Vomiting [Recovering/Resolving]
